FAERS Safety Report 15179146 (Version 1)
Quarter: 2018Q3

REPORT INFORMATION
  Report Type: Spontaneous
  Country: US (occurrence: US)
  Receive Date: 20180723
  Receipt Date: 20180723
  Transmission Date: 20181010
  Serious: Yes (Death, Other)
  Sender: FDA-Public Use
  Company Number: US-CIPLA LTD.-2018US20068

PATIENT

DRUGS (9)
  1. CARBOPLATIN. [Suspect]
     Active Substance: CARBOPLATIN
     Indication: NEOPLASM MALIGNANT
  2. PACLITAXEL ALBUMIN [Suspect]
     Active Substance: PACLITAXEL
     Indication: BREAST CANCER
     Dosage: 90 MG/M2, ONCE A WEEK FOR 3 WEEKS IN A 4 WEEK CYCLE
     Dates: start: 201208
  3. PACLITAXEL ALBUMIN [Suspect]
     Active Substance: PACLITAXEL
     Indication: NEOPLASM MALIGNANT
  4. IRINOTECAN [Suspect]
     Active Substance: IRINOTECAN
     Indication: METASTASES TO CENTRAL NERVOUS SYSTEM
     Dosage: 125 MG/M2, ONCE EVERY 2 WEEKS
     Route: 065
     Dates: start: 20130424
  5. TEMOZOLOMIDE. [Suspect]
     Active Substance: TEMOZOLOMIDE
     Indication: METASTASES TO CENTRAL NERVOUS SYSTEM
     Dosage: 100 MG/M2, DAILY ON DAYS 1?7 AND 15?21 OF EACH 28?DAY CYCLE
     Route: 065
     Dates: start: 20130424
  6. CARBOPLATIN. [Suspect]
     Active Substance: CARBOPLATIN
     Indication: BREAST CANCER
     Dosage: 450 MG, (AUC = 5), ONCE EVERY 3 WEEKS
     Route: 065
     Dates: start: 20120612
  7. PACLITAXEL ALBUMIN [Suspect]
     Active Substance: PACLITAXEL
     Indication: NON-SMALL CELL LUNG CANCER
     Dosage: 100 MG/M2, ONCE A WEEK FOR 3 WEEKS IN A 4 WEEK CYCLE
     Route: 065
     Dates: start: 20120612
  8. FILGRASTIM [Concomitant]
     Active Substance: FILGRASTIM
     Indication: NEUTROPHIL COUNT
     Dosage: UNK
     Route: 065
  9. CARBOPLATIN. [Suspect]
     Active Substance: CARBOPLATIN
     Indication: NON-SMALL CELL LUNG CANCER

REACTIONS (3)
  - Death [Fatal]
  - General physical health deterioration [Unknown]
  - Neutropenia [Unknown]

NARRATIVE: CASE EVENT DATE: 20130702
